FAERS Safety Report 7750192-1 (Version None)
Quarter: 2011Q3

REPORT INFORMATION
  Report Type: 
  Country: None (occurrence: None)
  Receive Date: 20110914
  Receipt Date: 20110914
  Transmission Date: 20111222
  Serious: No
  Sender: FDA-Public Use
  Company Number: None

PATIENT
  Sex: Female
  Weight: 63.502 kg

DRUGS (7)
  1. PROVERA [Concomitant]
  2. ESTRACE [Concomitant]
  3. LORAZEPAM [Concomitant]
  4. SYNTHROID [Concomitant]
  5. VIMPAT [Suspect]
     Indication: CONVULSION
     Dosage: 150 MG
     Route: 048
     Dates: start: 20101025, end: 20110913
  6. ACTOS [Concomitant]
  7. SPIRONOLACTONE [Concomitant]

REACTIONS (2)
  - LEG AMPUTATION [None]
  - THROMBOSIS [None]
